FAERS Safety Report 5484066-6 (Version None)
Quarter: 2007Q4

REPORT INFORMATION
  Report Type: 
  Country: None (occurrence: None)
  Receive Date: 20071012
  Receipt Date: 20071002
  Transmission Date: 20080405
  Serious: Yes (Other)
  Sender: FDA-Public Use
  Company Number: US-ROCHE-522865

PATIENT
  Age: 44 Year
  Sex: Female
  Weight: 93.4 kg

DRUGS (11)
  1. CAPECITABINE [Suspect]
     Indication: BREAST CANCER
     Dosage: DAYS 1-14 EVERY THREE WEEKS FOR FOUR CYCLES.
     Route: 048
  2. DOXORUBICIN HCL [Suspect]
     Indication: BREAST CANCER
     Dosage: FOR 4 CYCLES
     Route: 042
  3. CYCLOPHOSPHAMIDE [Suspect]
     Indication: BREAST CANCER
     Dosage: REPEAT EVERY 3 WEEKS FOR 4 CYCLES.
     Route: 042
  4. DOCETAXEL [Suspect]
     Indication: BREAST CANCER
     Dosage: FOR 4 CYCLES.
     Route: 042
  5. TRASTUZUMAB [Suspect]
     Indication: BREAST CANCER
     Route: 042
  6. TRASTUZUMAB [Suspect]
     Route: 042
  7. HYDROCODONE [Concomitant]
     Indication: PAIN
     Dates: start: 20050204
  8. MULTI-VITAMIN [Concomitant]
     Dosage: TAKEN DAILY
     Dates: start: 20050204
  9. 1 CONCOMITANT DRUG [Concomitant]
     Indication: ANXIETY
     Dosage: DRUG: LERAZOPAM
     Dates: start: 20070308
  10. 1 CONCOMITANT DRUG [Concomitant]
     Indication: HORMONE THERAPY
     Dosage: DRUG: ARMIDEX
     Dates: start: 20061116
  11. AROMASIN [Concomitant]
     Indication: HORMONE THERAPY
     Dosage: TAKEN DAILY
     Dates: start: 20070215

REACTIONS (1)
  - ACUTE MONOCYTIC LEUKAEMIA [None]
